FAERS Safety Report 8896992 (Version 1)
Quarter: 2012Q4

REPORT INFORMATION
  Report Type: 
  Country: US (occurrence: US)
  Receive Date: 20121108
  Receipt Date: 20121108
  Transmission Date: 20130627
  Serious: No
  Sender: FDA-Public Use
  Company Number: US-AMGEN-USASP2012025695

PATIENT
  Age: 56 Year
  Sex: Female
  Weight: 72 kg

DRUGS (3)
  1. ENBREL [Suspect]
     Indication: PSORIATIC ARTHROPATHY
     Dosage: 50 mg, qwk
     Route: 058
  2. VICODIN [Concomitant]
     Dosage: UNK
     Route: 048
  3. VITAMIN D /00107901/ [Concomitant]
     Route: 048

REACTIONS (3)
  - Hot flush [Unknown]
  - Pyrexia [Unknown]
  - Injection site reaction [Unknown]
